FAERS Safety Report 13604776 (Version 1)
Quarter: 2017Q2

REPORT INFORMATION
  Report Type: Spontaneous
  Country: US (occurrence: US)
  Receive Date: 20170601
  Receipt Date: 20170601
  Transmission Date: 20170830
  Serious: Yes (Hospitalization, Disabling)
  Sender: FDA-Public Use
  Company Number: None

PATIENT
  Age: 34 Year
  Sex: Male
  Weight: 81.72 kg

DRUGS (1)
  1. HALDOL [Suspect]
     Active Substance: HALOPERIDOL
     Dates: start: 20090104, end: 20170413

REACTIONS (5)
  - Visual impairment [None]
  - Blindness [None]
  - Somnolence [None]
  - Chest pain [None]
  - Hypersensitivity [None]

NARRATIVE: CASE EVENT DATE: 20170413
